FAERS Safety Report 23914864 (Version 1)
Quarter: 2024Q2

REPORT INFORMATION
  Report Type: Spontaneous
  Country: US (occurrence: None)
  Receive Date: 20240527
  Receipt Date: 20240527
  Transmission Date: 20240716
  Serious: Yes (Disabling)
  Sender: FDA-Public Use
  Company Number: None

PATIENT
  Age: 74 Year
  Sex: Female
  Weight: 83.7 kg

DRUGS (4)
  1. VARITHENA [Suspect]
     Active Substance: POLIDOCANOL
     Indication: Varicose vein
     Dates: start: 20240422, end: 20240422
  2. ARMOURTHYROID [Concomitant]
  3. SERTRALINE [Concomitant]
     Active Substance: SERTRALINE HYDROCHLORIDE
  4. TOPICAL PAIN MEDICATION [Concomitant]

REACTIONS (3)
  - Arthralgia [None]
  - Sleep disorder [None]
  - Procedural pain [None]

NARRATIVE: CASE EVENT DATE: 20240505
